FAERS Safety Report 13336573 (Version 1)
Quarter: 2017Q1

REPORT INFORMATION
  Report Type: Spontaneous
  Country: US (occurrence: US)
  Receive Date: 20170314
  Receipt Date: 20170314
  Transmission Date: 20170428
  Serious: No
  Sender: FDA-Public Use
  Company Number: US-JAZZ-2017-US-001767

PATIENT
  Sex: Female

DRUGS (9)
  1. XYREM [Suspect]
     Active Substance: SODIUM OXYBATE
     Dosage: 4G, BID
     Route: 048
     Dates: start: 201611
  2. TEMAZEPAM. [Concomitant]
     Active Substance: TEMAZEPAM
  3. PROVIGIL [Concomitant]
     Active Substance: MODAFINIL
  4. DOXEPIN [Concomitant]
     Active Substance: DOXEPIN
  5. BENADRYL ALLERGY [Concomitant]
     Active Substance: DIPHENHYDRAMINE HYDROCHLORIDE
  6. LEVOTHYROXINE. [Concomitant]
     Active Substance: LEVOTHYROXINE
  7. ADVIL (MEFENAMIC ACID) [Concomitant]
     Active Substance: MEFENAMIC ACID
  8. XYREM [Suspect]
     Active Substance: SODIUM OXYBATE
     Indication: NARCOLEPSY
     Dosage: DOSE ADJUSTMENT
     Route: 048
     Dates: start: 2003, end: 2003
  9. XYREM [Suspect]
     Active Substance: SODIUM OXYBATE
     Indication: CATAPLEXY
     Dosage: 1.5G, BID
     Route: 048
     Dates: start: 200306, end: 2003

REACTIONS (1)
  - Exposure during pregnancy [Unknown]
